FAERS Safety Report 7287363-7 (Version None)
Quarter: 2011Q1

REPORT INFORMATION
  Report Type: 
  Country: None (occurrence: None)
  Receive Date: 20110211
  Receipt Date: 20110204
  Transmission Date: 20110831
  Serious: No
  Sender: FDA-Public Use
  Company Number: JP-JNJFOC-20110201169

PATIENT
  Sex: Female

DRUGS (4)
  1. MYONAL [Concomitant]
     Indication: ILL-DEFINED DISORDER
     Route: 048
  2. CELECOXIB [Concomitant]
     Indication: ILL-DEFINED DISORDER
     Route: 048
  3. DUROTEP MT [Suspect]
     Indication: SCOLIOSIS
     Dosage: HALF PATCH USED
     Route: 062
  4. DUROTEP MT [Suspect]
     Route: 062

REACTIONS (4)
  - WRONG TECHNIQUE IN DRUG USAGE PROCESS [None]
  - NAUSEA [None]
  - WITHDRAWAL SYNDROME [None]
  - PANIC DISORDER [None]
